FAERS Safety Report 18711879 (Version 3)
Quarter: 2021Q1

REPORT INFORMATION
  Report Type: Report from Study
  Country: None (occurrence: TR)
  Receive Date: 20210107
  Receipt Date: 20210205
  Transmission Date: 20210419
  Serious: Yes (Hospitalization)
  Sender: FDA-Public Use
  Company Number: TR-ABBVIE-20K-161-3712451-00

PATIENT
  Sex: Male
  Weight: 60 kg

DRUGS (3)
  1. MADOPAR HBS [Concomitant]
     Active Substance: BENSERAZIDE HYDROCHLORIDE\LEVODOPA
     Indication: PARKINSON^S DISEASE
     Dosage: 1X2
     Route: 048
     Dates: start: 2015
  2. DUODOPA [Suspect]
     Active Substance: CARBIDOPA\LEVODOPA
     Indication: PARKINSON^S DISEASE
     Dosage: MORNING DOSE(ML): 3.50 CONTINUES DOSE(ML):2.90 EXTRA DOSE(ML):1.00
     Route: 050
     Dates: start: 20161017, end: 20201223
  3. DUODOPA [Suspect]
     Active Substance: CARBIDOPA\LEVODOPA
     Dosage: MORNING DOSE(ML): 3.50 CONTINUES DOSE(ML):2.90 EXTRA DOSE(ML):1.00
     Route: 050
     Dates: start: 20210105

REACTIONS (5)
  - Embedded device [Recovered/Resolved]
  - Weight decreased [Unknown]
  - Incorrect route of product administration [Recovered/Resolved]
  - Abdominal pain upper [Recovered/Resolved]
  - Device occlusion [Unknown]
